FAERS Safety Report 13380370 (Version 2)
Quarter: 2017Q4

REPORT INFORMATION
  Report Type: Spontaneous
  Country: US (occurrence: US)
  Receive Date: 20170329
  Receipt Date: 20171207
  Transmission Date: 20180320
  Serious: No
  Sender: FDA-Public Use
  Company Number: US-APOTEX-2016AP013973

PATIENT
  Sex: Female

DRUGS (1)
  1. FENTANYL TRANSDERMAL SYSTEM [Suspect]
     Active Substance: FENTANYL
     Indication: PRODUCT USED FOR UNKNOWN INDICATION
     Dosage: 75 ?G, ONE EVERY 72 HOURS
     Route: 062

REACTIONS (2)
  - Product adhesion issue [Unknown]
  - Pain [Unknown]
